FAERS Safety Report 11732249 (Version 1)
Quarter: 2015Q4

REPORT INFORMATION
  Report Type: Spontaneous
  Country: US (occurrence: US)
  Receive Date: 20151110
  Receipt Date: 20151110
  Transmission Date: 20160304
  Serious: No
  Sender: FDA-Public Use
  Company Number: US-ELI_LILLY_AND_COMPANY-US201203002631

PATIENT
  Age: 83 Year
  Sex: Female

DRUGS (1)
  1. FORTEO [Suspect]
     Active Substance: TERIPARATIDE
     Indication: OSTEOPOROSIS
     Dosage: 20 UG, QD

REACTIONS (10)
  - Herpes zoster [Recovered/Resolved]
  - Nasopharyngitis [Recovered/Resolved]
  - Rash [Recovered/Resolved]
  - Dizziness [Unknown]
  - Pruritus [Recovered/Resolved]
  - Cough [Recovered/Resolved]
  - Nasal congestion [Recovered/Resolved]
  - Blister [Recovered/Resolved]
  - Rhinorrhoea [Recovered/Resolved]
  - Pain [Recovered/Resolved]

NARRATIVE: CASE EVENT DATE: 20120130
